FAERS Safety Report 4459176-2 (Version None)
Quarter: 2004Q3

REPORT INFORMATION
  Report Type: 
  Country: None (occurrence: None)
  Receive Date: 20040920
  Receipt Date: 20040920
  Transmission Date: 20050211
  Serious: Yes (Hospitalization, Disabling)
  Sender: FDA-Public Use
  Company Number: None

PATIENT
  Sex: Female
  Weight: 91.173 kg

DRUGS (1)
  1. DEPO-PROVERA [Suspect]
     Dosage: EVERY 3
     Dates: start: 20030830, end: 20040714

REACTIONS (14)
  - AMENORRHOEA [None]
  - ARTHRALGIA [None]
  - DISTURBANCE IN ATTENTION [None]
  - EDUCATIONAL PROBLEM [None]
  - FATIGUE [None]
  - HOT FLUSH [None]
  - IRRITABLE BOWEL SYNDROME [None]
  - LOSS OF LIBIDO [None]
  - MEMORY IMPAIRMENT [None]
  - MIGRAINE [None]
  - MYALGIA [None]
  - NIGHT SWEATS [None]
  - PAIN [None]
  - SOCIAL FEAR [None]
